FAERS Safety Report 4943882-7 (Version None)
Quarter: 2006Q1

REPORT INFORMATION
  Report Type: 
  Country: None (occurrence: None)
  Receive Date: 20060310
  Receipt Date: 20051114
  Transmission Date: 20060701
  Serious: Yes (Other)
  Sender: FDA-Public Use
  Company Number: 2005156897

PATIENT
  Age: 62 Year
  Sex: Female

DRUGS (6)
  1. DETROL LA [Suspect]
     Indication: URINARY INCONTINENCE
     Dosage: 4 MG (4 MG, 1 IN 1 D), ORAL
     Route: 048
     Dates: start: 20000101, end: 20051001
  2. VALSARTAN [Concomitant]
  3. SKELAXIN [Concomitant]
  4. POTASSIUM (POTASSIUM) [Concomitant]
  5. RELAFEN [Concomitant]
  6. PREVACID [Concomitant]

REACTIONS (6)
  - ARTHRITIS [None]
  - DRY MOUTH [None]
  - DYSPHAGIA [None]
  - GASTROOESOPHAGEAL REFLUX DISEASE [None]
  - NASOPHARYNGEAL DISORDER [None]
  - PAIN [None]
